FAERS Safety Report 12218978 (Version 3)
Quarter: 2016Q2

REPORT INFORMATION
  Report Type: Spontaneous
  Country: JP (occurrence: JP)
  Receive Date: 20160329
  Receipt Date: 20160605
  Transmission Date: 20160815
  Serious: Yes (Hospitalization, Other)
  Sender: FDA-Public Use
  Company Number: JP-UCBSA-2016011048

PATIENT
  Age: 55 Year
  Sex: Female

DRUGS (7)
  1. E KEPPRA [Suspect]
     Active Substance: LEVETIRACETAM
     Dosage: 2000 MG/ DAILY
     Route: 048
  2. ZONISAMIDE. [Concomitant]
     Active Substance: ZONISAMIDE
     Indication: STATUS EPILEPTICUS
     Dosage: 200 MG
  3. MIDAZOLAM [Concomitant]
     Active Substance: MIDAZOLAM\MIDAZOLAM HYDROCHLORIDE
     Indication: EPILEPSY
     Dosage: UNKNOWN DOSE
     Route: 042
  4. E KEPPRA [Suspect]
     Active Substance: LEVETIRACETAM
     Indication: EPILEPSY
     Dosage: 1000 MG/ DAILY
     Route: 048
  5. CARBAMAZEPINE. [Suspect]
     Active Substance: CARBAMAZEPINE
     Indication: EPILEPSY
     Dosage: UNKNOWN DOSE
     Route: 048
  6. FOSPHENYTOIN [Concomitant]
     Active Substance: FOSPHENYTOIN\FOSPHENYTOIN SODIUM
     Dosage: UNKNOWN DOSE
  7. FOSPHENYTOIN [Concomitant]
     Active Substance: FOSPHENYTOIN\FOSPHENYTOIN SODIUM
     Indication: EPILEPSY
     Dosage: UNKNOWN DOSE
     Route: 042

REACTIONS (6)
  - Hemianopia homonymous [Unknown]
  - Status epilepticus [Recovered/Resolved]
  - Thrombocytopenia [Unknown]
  - Aphasia [Recovered/Resolved]
  - Cerebral haemorrhage [Unknown]
  - Confusional state [Unknown]
